FAERS Safety Report 5868134-2 (Version None)
Quarter: 2008Q3

REPORT INFORMATION
  Report Type: 
  Country: None (occurrence: None)
  Receive Date: 20080902
  Receipt Date: 20080514
  Transmission Date: 20090109
  Serious: No
  Sender: FDA-Public Use
  Company Number: US-ABBOTT-08P-163-0452512-00

PATIENT
  Sex: Female

DRUGS (2)
  1. DEPAKOTE ER [Suspect]
     Indication: ANXIETY
  2. DEPAKOTE ER [Suspect]
     Indication: DEPRESSION

REACTIONS (2)
  - FATIGUE [None]
  - POOR QUALITY SLEEP [None]
